FAERS Safety Report 17929297 (Version 2)
Quarter: 2021Q2

REPORT INFORMATION
  Report Type: Report from Study
  Country: US (occurrence: US)
  Receive Date: 20200623
  Receipt Date: 20210629
  Transmission Date: 20210717
  Serious: Yes (Hospitalization)
  Sender: FDA-Public Use
  Company Number: US-TEVA-2020-US-1790315

PATIENT
  Age: 44 Year
  Sex: Male

DRUGS (4)
  1. CLONIDINE. [Suspect]
     Active Substance: CLONIDINE
     Route: 048
  2. LISINOPRIL. [Suspect]
     Active Substance: LISINOPRIL
     Route: 048
  3. QUETIAPINE. [Suspect]
     Active Substance: QUETIAPINE
     Route: 048
  4. METFORMIN [Suspect]
     Active Substance: METFORMIN HYDROCHLORIDE
     Dosage: INGESTED 10G
     Route: 048

REACTIONS (5)
  - Intentional overdose [Unknown]
  - Hypotension [Recovered/Resolved]
  - Lactic acidosis [Recovered/Resolved]
  - Hyperkalaemia [Recovered/Resolved]
  - Hyperglycaemia [Recovered/Resolved]
